FAERS Safety Report 13245212 (Version 1)
Quarter: 2017Q1

REPORT INFORMATION
  Report Type: Spontaneous
  Country: US (occurrence: US)
  Receive Date: 20170217
  Receipt Date: 20170217
  Transmission Date: 20170428
  Serious: No
  Sender: FDA-Public Use
  Company Number: US-ASTRAZENECA-2017SE09949

PATIENT
  Sex: Female

DRUGS (2)
  1. IBRANCE [Suspect]
     Active Substance: PALBOCICLIB
     Indication: BREAST CANCER FEMALE
     Route: 048
     Dates: start: 20170106
  2. ZOLADEX [Suspect]
     Active Substance: GOSERELIN ACETATE
     Route: 058

REACTIONS (7)
  - Drug dose omission [Unknown]
  - Fatigue [Unknown]
  - Constipation [Unknown]
  - Neuropathy peripheral [Unknown]
  - Full blood count decreased [Unknown]
  - Product use issue [Unknown]
  - Alopecia [Unknown]
